FAERS Safety Report 9157735 (Version 3)
Quarter: 2013Q2

REPORT INFORMATION
  Report Type: Spontaneous
  Country: FR (occurrence: FR)
  Receive Date: 20130312
  Receipt Date: 20130405
  Transmission Date: 20140414
  Serious: Yes (Death, Life-Threatening, Other)
  Sender: FDA-Public Use
  Company Number: FR-PFIZER INC-2013078576

PATIENT
  Age: 60 Year
  Sex: Female

DRUGS (11)
  1. MYLOTARG [Suspect]
     Indication: ACUTE MYELOID LEUKAEMIA
     Dosage: 5 MG, UNK
     Route: 042
     Dates: start: 20130128, end: 20130128
  2. MYLOTARG [Suspect]
     Dosage: 5 MG, UNK
     Route: 042
     Dates: start: 20130131, end: 20130131
  3. MYLOTARG [Suspect]
     Dosage: 5 MG, UNK
     Route: 042
     Dates: start: 20130204, end: 20130204
  4. CYTARABINE [Suspect]
     Indication: ACUTE MYELOID LEUKAEMIA
     Dosage: 1900 MG, 2X/DAY
     Route: 042
     Dates: start: 20130128, end: 20130201
  5. MITOXANTRONE HCL [Suspect]
     Indication: ACUTE MYELOID LEUKAEMIA
     Dosage: 23 MG, DAILY
     Route: 042
     Dates: start: 20130128, end: 20130130
  6. HYZAAR [Concomitant]
  7. AMLOR [Concomitant]
  8. ZYLORIC [Concomitant]
  9. ARIMIDEX [Concomitant]
  10. IDARUBICIN [Concomitant]
  11. ARACYTINE [Concomitant]
     Dosage: UNK
     Dates: start: 20121211

REACTIONS (4)
  - Venoocclusive liver disease [Fatal]
  - Thrombocytopenia [Not Recovered/Not Resolved]
  - Agranulocytosis [Not Recovered/Not Resolved]
  - Subarachnoid haemorrhage [Unknown]
